FAERS Safety Report 4591342-8 (Version None)
Quarter: 2005Q1

REPORT INFORMATION
  Report Type: 
  Country: None (occurrence: None)
  Receive Date: 20050225
  Receipt Date: 20050215
  Transmission Date: 20050727
  Serious: No
  Sender: FDA-Public Use
  Company Number: FR-MERCK-0502USA02104M

PATIENT
  Sex: Female

DRUGS (5)
  1. HYDROCHLOROTHIAZIDE [Suspect]
     Route: 048
  2. VALSARTAN [Suspect]
     Route: 065
  3. LEVOTHYROXINE SODIUM [Concomitant]
     Route: 065
  4. PRAZOSIN [Concomitant]
     Route: 065
  5. ASPIRIN LYSINE [Concomitant]
     Indication: PROPHYLAXIS
     Route: 065

REACTIONS (11)
  - CAESAREAN SECTION [None]
  - DRUG EXPOSURE DURING PREGNANCY [None]
  - FOETAL DISORDER [None]
  - FOETAL HEART RATE DECELERATION [None]
  - HYPERTENSIVE HEART DISEASE [None]
  - KIDNEY MALFORMATION [None]
  - OLIGOHYDRAMNIOS [None]
  - PREGNANCY [None]
  - RENAL FAILURE [None]
  - SKULL MALFORMATION [None]
  - TALIPES [None]
